FAERS Safety Report 17009757 (Version 2)
Quarter: 2020Q1

REPORT INFORMATION
  Report Type: Spontaneous
  Country: None (occurrence: US)
  Receive Date: 20191108
  Receipt Date: 20200106
  Transmission Date: 20200409
  Serious: No
  Sender: FDA-Public Use
  Company Number: US-BIOGEN-2009BI035350

PATIENT
  Age: 55 Year
  Sex: Female

DRUGS (1)
  1. TYSABRI [Suspect]
     Active Substance: NATALIZUMAB
     Indication: MULTIPLE SCLEROSIS
     Route: 042
     Dates: start: 20090928, end: 20170816

REACTIONS (10)
  - Gastrointestinal disorder [Unknown]
  - Fatigue [Recovered/Resolved]
  - Seasonal allergy [Unknown]
  - Migraine [Recovered/Resolved]
  - Headache [Recovered/Resolved]
  - Autonomic nervous system imbalance [Unknown]
  - Cough [Recovered/Resolved]
  - Nausea [Not Recovered/Not Resolved]
  - Insomnia [Recovered/Resolved]
  - Upper-airway cough syndrome [Recovered/Resolved]

NARRATIVE: CASE EVENT DATE: 20090928
